FAERS Safety Report 12589072 (Version 1)
Quarter: 2016Q3

REPORT INFORMATION
  Report Type: Spontaneous
  Country: US (occurrence: US)
  Receive Date: 20160725
  Receipt Date: 20160725
  Transmission Date: 20161109
  Serious: Yes (Other)
  Sender: FDA-Public Use
  Company Number: US-JNJFOC-20160703855

PATIENT
  Age: 82 Year
  Sex: Female
  Weight: 63.5 kg

DRUGS (1)
  1. DARZALEX [Suspect]
     Active Substance: DARATUMUMAB
     Indication: PLASMA CELL MYELOMA
     Route: 042
     Dates: start: 20160601

REACTIONS (2)
  - Transfusion [Unknown]
  - Crossmatch incompatible [Unknown]

NARRATIVE: CASE EVENT DATE: 201606
